FAERS Safety Report 4538666-8 (Version None)
Quarter: 2004Q4

REPORT INFORMATION
  Report Type: 
  Country: None (occurrence: None)
  Receive Date: 20041222
  Receipt Date: 20041203
  Transmission Date: 20050328
  Serious: Yes (Hospitalization)
  Sender: FDA-Public Use
  Company Number: 04-326

PATIENT
  Age: 47 Year
  Sex: Male

DRUGS (3)
  1. IBUPROFEN [Suspect]
     Indication: POST LAMINECTOMY SYNDROME
  2. ROFECOXIB [Suspect]
     Indication: POST LAMINECTOMY SYNDROME
     Dosage: 25 MG
  3. MUSCLE RELAXANT (MUSCLE RELAXANTS) [Concomitant]

REACTIONS (9)
  - DIZZINESS [None]
  - DUODENAL ULCER [None]
  - DYSPEPSIA [None]
  - FAECES DISCOLOURED [None]
  - GASTRITIS [None]
  - HAEMOGLOBIN DECREASED [None]
  - HELICOBACTER PYLORI IDENTIFICATION TEST POSITIVE [None]
  - INADEQUATE ANALGESIA [None]
  - UPPER GASTROINTESTINAL HAEMORRHAGE [None]
